FAERS Safety Report 5078204-7 (Version None)
Quarter: 2006Q3

REPORT INFORMATION
  Report Type: 
  Country: None (occurrence: None)
  Receive Date: 20060811
  Receipt Date: 20060601
  Transmission Date: 20061208
  Serious: Yes (Other)
  Sender: FDA-Public Use
  Company Number: BE-AMGEN-UK181644

PATIENT
  Sex: Female
  Weight: 50 kg

DRUGS (27)
  1. PALIFERMIN [Suspect]
     Indication: MUCOSAL INFLAMMATION
     Route: 042
     Dates: start: 20060315, end: 20060323
  2. MELPHALAN [Suspect]
     Route: 042
     Dates: start: 20050319
  3. TROPISETRON [Concomitant]
     Route: 042
     Dates: start: 20060319, end: 20060324
  4. ZOFRAN [Concomitant]
     Route: 042
     Dates: start: 20060325, end: 20060327
  5. LITICAN [Concomitant]
     Route: 042
     Dates: start: 20060319, end: 20060406
  6. TRANXENE [Concomitant]
     Route: 042
     Dates: start: 20060319, end: 20060605
  7. NEUPOGEN [Concomitant]
     Route: 042
     Dates: start: 20060324, end: 20060402
  8. POTASSIUM CHLORIDE [Concomitant]
     Route: 042
     Dates: start: 20060315, end: 20060407
  9. POLARAMINE [Concomitant]
     Route: 042
     Dates: start: 20060318, end: 20060319
  10. EUTHYROX [Concomitant]
     Route: 048
  11. BEFACT [Concomitant]
     Route: 048
  12. ZESTORETIC [Concomitant]
     Route: 048
  13. MOTILIUM [Concomitant]
     Route: 048
     Dates: start: 20060315, end: 20060321
  14. OMEPRAZOLE [Concomitant]
     Route: 048
  15. OFLOXACIN [Concomitant]
     Route: 048
     Dates: start: 20060317, end: 20060320
  16. OFLOXACIN [Concomitant]
     Route: 042
  17. FLUCONAZOLE [Concomitant]
     Route: 048
     Dates: start: 20060317, end: 20060320
  18. FLUCONAZOLE [Concomitant]
     Route: 042
     Dates: start: 20060320, end: 20060405
  19. TRAMADOL HCL [Concomitant]
     Route: 042
     Dates: start: 20060320, end: 20060325
  20. LASIX [Concomitant]
     Route: 042
     Dates: start: 20060324, end: 20060328
  21. ZOVIRAX [Concomitant]
     Route: 042
     Dates: start: 20060322, end: 20060405
  22. HALDOL [Concomitant]
     Route: 042
     Dates: start: 20060325, end: 20060331
  23. SOLU-MEDROL [Concomitant]
     Route: 042
     Dates: start: 20060324, end: 20060330
  24. MAXIPIME [Concomitant]
     Route: 042
     Dates: start: 20060330, end: 20060404
  25. MORPHINE [Concomitant]
     Route: 042
     Dates: start: 20060329, end: 20060404
  26. ACETAMINOPHEN [Concomitant]
     Route: 042
     Dates: start: 20060331, end: 20060331
  27. VANCOMYCIN [Concomitant]
     Route: 042
     Dates: start: 20060331, end: 20060404

REACTIONS (9)
  - DERMATITIS EXFOLIATIVE [None]
  - FACE OEDEMA [None]
  - FLUID RETENTION [None]
  - OEDEMA MUCOSAL [None]
  - PAIN [None]
  - PRURITUS [None]
  - SODIUM RETENTION [None]
  - TONGUE OEDEMA [None]
  - VOMITING [None]
